FAERS Safety Report 11700536 (Version 1)
Quarter: 2015Q4

REPORT INFORMATION
  Report Type: Spontaneous
  Country: US (occurrence: None)
  Receive Date: 20151104
  Receipt Date: 20151104
  Transmission Date: 20160304
  Serious: No
  Sender: FDA-Public Use
  Company Number: None

PATIENT
  Age: 52 Year
  Sex: Female
  Weight: 76.2 kg

DRUGS (2)
  1. SUPREP BOWEL PREP [Suspect]
     Active Substance: MAGNESIUM SULFATE\POTASSIUM SULFATE\SODIUM SULFATE
     Indication: BOWEL PREPARATION
     Dosage: (17.55/3..13/1.6G) PER 6 OUNCES  SPLIT DOSE REGIMEN
     Route: 048
     Dates: start: 20150910, end: 20150911
  2. GENERIC CLARITIN [Concomitant]

REACTIONS (2)
  - Abdominal distension [None]
  - Vomiting [None]

NARRATIVE: CASE EVENT DATE: 20150910
